FAERS Safety Report 4803925-8 (Version None)
Quarter: 2005Q3

REPORT INFORMATION
  Report Type: 
  Country: None (occurrence: None)
  Receive Date: 20050920
  Receipt Date: 20050818
  Transmission Date: 20060218
  Serious: No
  Sender: FDA-Public Use
  Company Number: US-YAMANOUCHI-YPA20050432

PATIENT
  Age: 79 Year
  Sex: Female
  Weight: 90.7194 kg

DRUGS (6)
  1. VESICARE [Suspect]
     Dosage: 5 MG QD PO
     Route: 048
     Dates: start: 20050101
  2. ASACOL [Concomitant]
  3. NEURONTIN [Concomitant]
  4. ADVICOR [Concomitant]
  5. WATER PILL [Concomitant]
  6. LOPRESSOR [Concomitant]

REACTIONS (1)
  - COLITIS [None]
